FAERS Safety Report 11047575 (Version 1)
Quarter: 2015Q2

REPORT INFORMATION
  Report Type: Spontaneous
  Country: JP (occurrence: JP)
  Receive Date: 20150420
  Receipt Date: 20150420
  Transmission Date: 20150821
  Serious: Yes (Hospitalization, Other)
  Sender: FDA-Public Use
  Company Number: JP-ACTAVIS-2015-07897

PATIENT
  Age: 66 Year
  Sex: Male

DRUGS (11)
  1. FLUOROURACIL 5 FU [Suspect]
     Active Substance: FLUOROURACIL
     Dosage: 400 MG/M2, CYCLICAL,2 COURSES
     Route: 040
  2. CAPECITABINE (UNKNOWN) [Suspect]
     Active Substance: CAPECITABINE
     Indication: COLON CANCER
     Dosage: 150 MG/M2, CYCLICAL, 2 COURSES
     Route: 041
  3. FLUOROURACIL 5 FU [Suspect]
     Active Substance: FLUOROURACIL
     Indication: COLON CANCER
     Dosage: 400 MG/M2, CYCLICAL,35 COURSES
     Route: 040
     Dates: start: 201006
  4. FLUOROURACIL 5 FU [Suspect]
     Active Substance: FLUOROURACIL
     Dosage: 2400 MG/M2, CYCLICAL,35 COURSES
     Route: 041
     Dates: start: 201006
  5. OXALIPLATIN (UNKNOWN) [Suspect]
     Active Substance: OXALIPLATIN
     Indication: COLON CANCER
     Dosage: 85 MG/M2, CYCLICAL, 12COURSES
     Route: 041
     Dates: start: 201006
  6. FLUOROURACIL 5 FU [Suspect]
     Active Substance: FLUOROURACIL
     Dosage: 2400 MG/M2, CYCLICAL, 2 COURSES
     Route: 041
  7. CALCIUM FOLINATE [Suspect]
     Active Substance: LEUCOVORIN CALCIUM
     Indication: COLON CANCER
     Dosage: 200 MG/M2, CYCLICAL,35 COURSES
     Route: 041
     Dates: start: 201006
  8. PANITUMUMAB [Suspect]
     Active Substance: PANITUMUMAB
     Indication: COLON CANCER
     Dosage: 6 MG/M2, CYCLICAL
     Route: 041
  9. LACTULOSE. [Concomitant]
     Active Substance: LACTULOSE
     Indication: PRODUCT USED FOR UNKNOWN INDICATION
     Dosage: UNK
     Route: 065
  10. CALCIUM FOLINATE [Suspect]
     Active Substance: LEUCOVORIN CALCIUM
     Dosage: 200 MG/M2, CYCLICAL, 2 COURSES
     Route: 041
  11. BEVACIZUMAB [Suspect]
     Active Substance: BEVACIZUMAB
     Indication: COLON CANCER
     Dosage: 5 MG/KG, CYCLICAL, 35 COURSES
     Route: 041
     Dates: start: 201006

REACTIONS (8)
  - Encephalopathy [Recovering/Resolving]
  - Venoocclusive liver disease [Unknown]
  - Portal hypertension [Unknown]
  - Thrombocytopenia [Unknown]
  - Oesophageal varices haemorrhage [Recovered/Resolved]
  - Hyperammonaemia [Recovering/Resolving]
  - Splenomegaly [Unknown]
  - Neuropathy peripheral [Unknown]

NARRATIVE: CASE EVENT DATE: 201108
